FAERS Safety Report 21137973 (Version 3)
Quarter: 2023Q1

REPORT INFORMATION
  Report Type: Spontaneous
  Country: US (occurrence: US)
  Receive Date: 20220727
  Receipt Date: 20230111
  Transmission Date: 20230417
  Serious: Yes (Other)
  Sender: FDA-Public Use
  Company Number: US-SA-SAC20220726002075

PATIENT
  Sex: Male

DRUGS (6)
  1. DUPIXENT [Suspect]
     Active Substance: DUPILUMAB
     Indication: Dermatitis atopic
     Dosage: 300 MG, QOW
     Route: 058
     Dates: start: 20191025
  2. LOSARTAN POTASSIUM [Concomitant]
     Active Substance: LOSARTAN POTASSIUM
  3. ALBUTEROL SULFATE [Concomitant]
     Active Substance: ALBUTEROL SULFATE
  4. AIRBORNE [Concomitant]
     Active Substance: HERBALS\MINERALS\VITAMINS
     Dosage: 250-12.5MG
  5. DESOXIMETASONE [Concomitant]
     Active Substance: DESOXIMETASONE
  6. RINVOQ [Concomitant]
     Active Substance: UPADACITINIB

REACTIONS (7)
  - Haemorrhage [Unknown]
  - Pain [Unknown]
  - Skin fissures [Unknown]
  - Rash [Unknown]
  - Dermatitis atopic [Unknown]
  - Dry skin [Unknown]
  - Eczema [Unknown]
